FAERS Safety Report 20822044 (Version 1)
Quarter: 2022Q2

REPORT INFORMATION
  Report Type: Spontaneous
  Country: US (occurrence: None)
  Receive Date: 20220512
  Receipt Date: 20220512
  Transmission Date: 20220720
  Serious: Yes (Death)
  Sender: FDA-Public Use
  Company Number: None

PATIENT
  Age: 75 Year
  Sex: Male
  Weight: 112 kg

DRUGS (2)
  1. WARFARIN [Suspect]
     Active Substance: WARFARIN
     Indication: Atrial fibrillation
     Dosage: FREQUENCY : DAILY;?
     Route: 048
     Dates: start: 20211008, end: 20220203
  2. WARFARIN [Suspect]
     Active Substance: WARFARIN
     Indication: Cerebrovascular accident

REACTIONS (5)
  - Fall [None]
  - Subdural haematoma [None]
  - Cerebral mass effect [None]
  - International normalised ratio decreased [None]
  - Traumatic haematoma [None]

NARRATIVE: CASE EVENT DATE: 20220203
